FAERS Safety Report 8158184-8 (Version None)
Quarter: 2012Q1

REPORT INFORMATION
  Report Type: 
  Country: None (occurrence: None)
  Receive Date: 20120222
  Receipt Date: 20120209
  Transmission Date: 20120608
  Serious: Yes (Congenital Anomaly, Other)
  Sender: FDA-Public Use
  Company Number: DE-MYLANLABS-2012S1002918

PATIENT
  Age: 0 Year
  Sex: Female
  Weight: 1.71 kg

DRUGS (4)
  1. FRISIUM [Suspect]
     Dosage: 7.5 [MG/D (3 X 2.5 MG/D) ]
     Route: 064
     Dates: start: 20101217, end: 20110211
  2. FOLIC ACID [Concomitant]
     Dosage: 0-12 GW
     Route: 064
     Dates: start: 20100708
  3. LAMOTRIGINE [Suspect]
     Dosage: 375 [MG/D ]/ TIL 20100928: 150 MG/D, THEN SLOWLY INCREASED TO 375 MG/D
     Route: 064
     Dates: start: 20100708, end: 20110211
  4. THYROXIN [Concomitant]
     Dosage: 0-31.1 GW
     Route: 064
     Dates: start: 20100708, end: 20110211

REACTIONS (14)
  - FEEDING DISORDER NEONATAL [None]
  - CARDIAC ANEURYSM [None]
  - MYOCLONUS [None]
  - CEREBRAL HAEMORRHAGE NEONATAL [None]
  - ATRIAL SEPTAL DEFECT [None]
  - HYPOGLYCAEMIA NEONATAL [None]
  - ANAEMIA NEONATAL [None]
  - VENTRICULAR SEPTAL DEFECT [None]
  - HYPERBILIRUBINAEMIA NEONATAL [None]
  - NEONATAL RESPIRATORY DISTRESS SYNDROME [None]
  - CONGENITAL CHOROID PLEXUS CYST [None]
  - MATERNAL EXPOSURE DURING PREGNANCY [None]
  - PREMATURE BABY [None]
  - FOETAL HEART RATE DECELERATION [None]
